FAERS Safety Report 12742193 (Version 2)
Quarter: 2016Q3

REPORT INFORMATION
  Report Type: Report from Study
  Country: BR (occurrence: BR)
  Receive Date: 20160914
  Receipt Date: 20160916
  Transmission Date: 20161109
  Serious: Yes (Death)
  Sender: FDA-Public Use
  Company Number: PHHY2016BR126188

PATIENT
  Age: 88 Year
  Sex: Female
  Weight: 61 kg

DRUGS (6)
  1. MEMANTINE. [Suspect]
     Active Substance: MEMANTINE
     Indication: DEMENTIA ALZHEIMER^S TYPE
     Dosage: 0.5 DF, QD (10 MG, HALF TABLET IN THE MORNING)
     Route: 048
  2. EXELON PATCH [Suspect]
     Active Substance: RIVASTIGMINE
     Indication: DEMENTIA ALZHEIMER^S TYPE
     Dosage: 9.5 MG, QD PATCH 10 CM2
     Route: 062
  3. CITALOPRAM [Suspect]
     Active Substance: CITALOPRAM HYDROBROMIDE
     Indication: DEMENTIA ALZHEIMER^S TYPE
     Dosage: 20 MG, QD, ONE TABLET IN THE MORNING
     Route: 048
  4. EQUILID [Suspect]
     Active Substance: SULPIRIDE
     Indication: INSOMNIA
     Dosage: 50 MG, QD, ONE TABLET AT NIGHT
     Route: 048
  5. QUETIAPINE. [Suspect]
     Active Substance: QUETIAPINE
     Indication: INSOMNIA
     Dosage: 5 MG, UNK
     Route: 048
  6. QUETIAPINE. [Suspect]
     Active Substance: QUETIAPINE
     Indication: ANXIETY

REACTIONS (5)
  - Dysphagia [Unknown]
  - Arrhythmia [Fatal]
  - Myocardial infarction [Fatal]
  - Fall [Unknown]
  - Drug ineffective [Unknown]

NARRATIVE: CASE EVENT DATE: 20160828
